FAERS Safety Report 7283146-2 (Version None)
Quarter: 2011Q1

REPORT INFORMATION
  Report Type: 
  Country: None (occurrence: None)
  Receive Date: 20110209
  Receipt Date: 20110202
  Transmission Date: 20110831
  Serious: Yes (Death)
  Sender: FDA-Public Use
  Company Number: FR-ROCHE-757111

PATIENT
  Age: 20 Month
  Sex: Male
  Weight: 10 kg

DRUGS (22)
  1. ROCEPHIN [Suspect]
     Dosage: 500 MG/2ML CHILD POWDER AND SOLVENT FOR INJECTABLE SOLUTION
     Route: 042
     Dates: start: 20101223
  2. SUFENTA PRESERVATIVE FREE [Suspect]
     Route: 042
     Dates: start: 20101223, end: 20101223
  3. CALCIPARINE [Suspect]
     Route: 058
     Dates: start: 20101223, end: 20101223
  4. SOLU-MEDROL [Suspect]
     Route: 042
     Dates: start: 20101223, end: 20101223
  5. SEVOFLURANE [Suspect]
     Dosage: ROUTE: INHALATION (RESPIRATORY)
     Route: 055
     Dates: start: 20101223, end: 20101223
  6. PERFALGAN [Suspect]
     Route: 042
     Dates: start: 20101223, end: 20101224
  7. CELLCEPT [Suspect]
     Route: 042
     Dates: start: 20101223, end: 20101224
  8. TRACRIUM [Suspect]
     Route: 042
     Dates: start: 20101223, end: 20101223
  9. ADRENALINE [Suspect]
     Route: 042
     Dates: start: 20101223, end: 20101224
  10. NEXIUM [Suspect]
     Route: 042
     Dates: start: 20101223, end: 20101223
  11. HYPNOVEL (INJ) [Suspect]
     Dosage: 5 MG/ML, INJECTABLE SOLUTION
     Route: 042
     Dates: start: 20101223, end: 20101223
  12. VENTOLIN [Suspect]
     Route: 065
     Dates: start: 20101223, end: 20101223
  13. ATROPINE [Suspect]
     Route: 042
     Dates: start: 20101223, end: 20101223
  14. VIALEBEX [Suspect]
     Dosage: DOSE: 40 MG/ML
     Route: 042
     Dates: start: 20101223, end: 20101224
  15. COROTROP [Suspect]
     Dosage: DRUG: COROTROPE
     Route: 042
     Dates: start: 20101224
  16. SIMULECT [Suspect]
     Route: 042
     Dates: start: 20101223, end: 20101223
  17. LASIX [Suspect]
     Dosage: FREQUENCY: TWICE
     Route: 042
     Dates: start: 20101223, end: 20101223
  18. KETAMINE [Suspect]
     Route: 042
     Dates: start: 20101224, end: 20101224
  19. MORPHINE [Suspect]
     Dosage: DOSE: 31 UG/KG PER HOUR
     Route: 042
     Dates: start: 20101223
  20. FLAGYL [Suspect]
     Route: 042
     Dates: start: 20101224, end: 20101224
  21. NORADRENALINE [Suspect]
     Route: 042
     Dates: start: 20101223, end: 20101224
  22. BACTRIM [Suspect]
     Route: 042
     Dates: start: 20101223

REACTIONS (3)
  - CARDIAC FAILURE [None]
  - ACUTE PULMONARY OEDEMA [None]
  - RESPIRATORY FAILURE [None]
